FAERS Safety Report 18046513 (Version 6)
Quarter: 2020Q3

REPORT INFORMATION
  Report Type: Spontaneous
  Country: US (occurrence: US)
  Receive Date: 20200720
  Receipt Date: 20200811
  Transmission Date: 20201103
  Serious: Yes (Hospitalization)
  Sender: FDA-Public Use
  Company Number: US-ACTELION-A-NJ2020-207167

PATIENT
  Age: 19 Year
  Sex: Female
  Weight: 70.75 kg

DRUGS (4)
  1. REMODULIN [Concomitant]
     Active Substance: TREPROSTINIL
     Dosage: 35.5 NG/KG, PER MIN
     Route: 042
  2. OPSUMIT [Suspect]
     Active Substance: MACITENTAN
     Indication: PULMONARY ARTERIAL HYPERTENSION
     Dosage: 10 MG, QD
     Route: 048
  3. SILDENAFIL CITRATE. [Concomitant]
     Active Substance: SILDENAFIL CITRATE
  4. REMODULIN [Concomitant]
     Active Substance: TREPROSTINIL
     Dosage: 43 NG/KG, PER MIN
     Route: 042

REACTIONS (4)
  - Syncope [Unknown]
  - Resuscitation [Unknown]
  - Loss of consciousness [Unknown]
  - Transplant evaluation [Unknown]

NARRATIVE: CASE EVENT DATE: 20200709
